FAERS Safety Report 14521339 (Version 1)
Quarter: 2018Q1

REPORT INFORMATION
  Report Type: Report from Study
  Country: FR (occurrence: FR)
  Receive Date: 20180212
  Receipt Date: 20180212
  Transmission Date: 20180509
  Serious: Yes (Hospitalization)
  Sender: FDA-Public Use
  Company Number: FR-PFIZER INC-2018054220

PATIENT
  Age: 75 Year
  Sex: Male
  Weight: 63 kg

DRUGS (4)
  1. CARBOPLATINE HOSPIRA [Suspect]
     Active Substance: CARBOPLATIN
     Indication: TONGUE NEOPLASM MALIGNANT STAGE UNSPECIFIED
     Dosage: 305 MG, UNK
     Dates: start: 20160708
  2. ERBITUX [Suspect]
     Active Substance: CETUXIMAB
     Dosage: 705 MG, UNK
     Dates: start: 20160708
  3. ERBITUX [Suspect]
     Active Substance: CETUXIMAB
     Indication: TONGUE NEOPLASM MALIGNANT STAGE UNSPECIFIED
     Dosage: 865 MG, UNK
  4. FLUOROURACIL. [Suspect]
     Active Substance: FLUOROURACIL
     Indication: TONGUE NEOPLASM MALIGNANT STAGE UNSPECIFIED
     Dosage: 7050 MG, UNK
     Dates: start: 20160708

REACTIONS (5)
  - Decreased appetite [Recovered/Resolved]
  - General physical health deterioration [Recovered/Resolved]
  - Candida infection [Recovered/Resolved]
  - Anaemia [Recovered/Resolved]
  - Mucosal inflammation [Recovered/Resolved]

NARRATIVE: CASE EVENT DATE: 20160919
